FAERS Safety Report 21412917 (Version 1)
Quarter: 2022Q4

REPORT INFORMATION
  Report Type: Spontaneous
  Country: US (occurrence: US)
  Receive Date: 20221005
  Receipt Date: 20221005
  Transmission Date: 20230113
  Serious: Yes (Other)
  Sender: FDA-Public Use
  Company Number: US-HORIZON THERAPEUTICS-HZN-2022-007572

PATIENT

DRUGS (2)
  1. RAYOS [Suspect]
     Active Substance: PREDNISONE
     Indication: Immunosuppressant drug therapy
     Route: 065
  2. MYCOPHENOLATE MOFETIL [Suspect]
     Active Substance: MYCOPHENOLATE MOFETIL
     Indication: Immunosuppressant drug therapy
     Route: 065

REACTIONS (5)
  - Epidermodysplasia verruciformis [Recovered/Resolved]
  - Anogenital warts [Recovered/Resolved]
  - Viral acanthoma [Recovered/Resolved]
  - Papilloma viral infection [Recovered/Resolved]
  - Cervical dysplasia [Recovered/Resolved]
